FAERS Safety Report 16818153 (Version 2)
Quarter: 2019Q3

REPORT INFORMATION
  Report Type: Spontaneous
  Country: US (occurrence: US)
  Receive Date: 20190917
  Receipt Date: 20190917
  Transmission Date: 20191005
  Serious: Yes (Other)
  Sender: FDA-Public Use
  Company Number: US-AMERICAN REGENT INC-2019002004

PATIENT
  Age: 30 Year
  Sex: Female

DRUGS (12)
  1. LIDOCAINE HCL INJECTION, USP (0625-25) [Suspect]
     Active Substance: LIDOCAINE HYDROCHLORIDE
     Indication: BLOOD PRESSURE DECREASED
     Dosage: UNK
  2. PHENOBARBITAL. [Suspect]
     Active Substance: PHENOBARBITAL
     Indication: SEIZURE
     Dosage: 520 UNK
     Route: 065
  3. LIDOCAINE HCL INJECTION, USP (0625-25) [Suspect]
     Active Substance: LIDOCAINE HYDROCHLORIDE
     Indication: SEIZURE
  4. NOREPINEPHRINE. [Suspect]
     Active Substance: NOREPINEPHRINE
     Indication: PRODUCT USED FOR UNKNOWN INDICATION
     Route: 042
  5. PHENOBARBITAL. [Suspect]
     Active Substance: PHENOBARBITAL
     Indication: BLOOD PRESSURE DECREASED
     Dosage: 1950 MILLIGRAM
     Route: 042
  6. SODIUM BICARBONATE. [Suspect]
     Active Substance: SODIUM BICARBONATE
     Indication: SEIZURE
     Dosage: 400 MILLIEQUIVALENT
  7. SODIUM BICARBONATE. [Suspect]
     Active Substance: SODIUM BICARBONATE
     Indication: BLOOD PRESSURE DECREASED
  8. LIDOCAINE HCL INJECTION, USP (0625-25) [Suspect]
     Active Substance: LIDOCAINE HYDROCHLORIDE
     Indication: ELECTROCARDIOGRAM QRS COMPLEX PROLONGED
     Dosage: UNK
  9. SODIUM BICARBONATE. [Suspect]
     Active Substance: SODIUM BICARBONATE
     Indication: TACHYCARDIA
     Dosage: 200 MILLIEQUIVALENT
  10. SODIUM BICARBONATE. [Suspect]
     Active Substance: SODIUM BICARBONATE
     Indication: HYPOTENSION
  11. PHENOBARBITAL. [Suspect]
     Active Substance: PHENOBARBITAL
     Indication: ELECTROCARDIOGRAM QRS COMPLEX PROLONGED
  12. SODIUM BICARBONATE. [Suspect]
     Active Substance: SODIUM BICARBONATE
     Indication: ELECTROCARDIOGRAM QRS COMPLEX PROLONGED

REACTIONS (2)
  - Off label use [Unknown]
  - Ventricular tachycardia [Unknown]
